FAERS Safety Report 8599823 (Version 2)
Quarter: 2016Q2

REPORT INFORMATION
  Report Type: Spontaneous
  Country: US (occurrence: US)
  Receive Date: 20120605
  Receipt Date: 20160618
  Transmission Date: 20160815
  Serious: No
  Sender: FDA-Public Use
  Company Number: US-ASTRAZENECA-2012SE26330

PATIENT
  Age: 38 Year
  Sex: Female
  Weight: 46.7 kg

DRUGS (3)
  1. ZOPINEX [Concomitant]
     Dosage: AS NEEDED
  2. PULMICORT FLEXHALER [Suspect]
     Active Substance: BUDESONIDE
     Dosage: 180 MCG ONE PUFF TWICE A DAY
     Route: 055
  3. PULMICORT FLEXHALER [Suspect]
     Active Substance: BUDESONIDE
     Dosage: 180 MCG ONE PUFF DAILY
     Route: 055
     Dates: start: 2005

REACTIONS (6)
  - Malaise [Unknown]
  - Palpitations [Unknown]
  - Product use issue [Unknown]
  - Throat irritation [Unknown]
  - Headache [Unknown]
  - Off label use [Unknown]
